FAERS Safety Report 9165316 (Version 2)
Quarter: 2013Q4

REPORT INFORMATION
  Report Type: Spontaneous
  Country: GB (occurrence: None)
  Receive Date: 20130228
  Receipt Date: 20131001
  Transmission Date: 20140711
  Serious: Yes (Other)
  Sender: FDA-Public Use
  Company Number: GER/UKI/13/0028196

PATIENT
  Age: 51 Year
  Sex: Female

DRUGS (3)
  1. FLUOXETINE (FLUOXETINE) [Suspect]
     Indication: ANXIETY
     Route: 048
     Dates: start: 20121008, end: 20121105
  2. FLUOXETINE (FLUOXETINE) [Suspect]
     Indication: DEPRESSION
     Route: 048
     Dates: start: 20121008, end: 20121105
  3. ASPIRIN (ACETYLSALICYCLIC ACID) [Concomitant]

REACTIONS (2)
  - Visual field defect [None]
  - Visual field defect [None]
